FAERS Safety Report 15980119 (Version 2)
Quarter: 2019Q1

REPORT INFORMATION
  Report Type: Spontaneous
  Country: DE (occurrence: DE)
  Receive Date: 20190219
  Receipt Date: 20190228
  Transmission Date: 20190418
  Serious: Yes (Hospitalization)
  Sender: FDA-Public Use
  Company Number: DE-CELGENEUS-DEU-20190106012

PATIENT
  Age: 60 Year
  Sex: Male
  Weight: 77 kg

DRUGS (1)
  1. REVLIMID [Suspect]
     Active Substance: LENALIDOMIDE
     Indication: PRODUCT USED FOR UNKNOWN INDICATION
     Route: 048
     Dates: start: 201710

REACTIONS (2)
  - Disease progression [Not Recovered/Not Resolved]
  - Light chain analysis increased [Unknown]

NARRATIVE: CASE EVENT DATE: 20181010
